FAERS Safety Report 8002959-2 (Version None)
Quarter: 2011Q4

REPORT INFORMATION
  Report Type: 
  Country: None (occurrence: None)
  Receive Date: 20111222
  Receipt Date: 20110511
  Transmission Date: 20120403
  Serious: No
  Sender: FDA-Public Use
  Company Number: US-GLAXOSMITHKLINE-A0927004A

PATIENT
  Age: 58 Year
  Sex: Male

DRUGS (2)
  1. NO CONCURRENT MEDICATION [Concomitant]
  2. AVODART [Suspect]
     Indication: BENIGN PROSTATIC HYPERPLASIA
     Route: 048
     Dates: start: 20110301, end: 20110501

REACTIONS (3)
  - SENSORY LOSS [None]
  - ERECTILE DYSFUNCTION [None]
  - LIBIDO DECREASED [None]
